FAERS Safety Report 5238562-7 (Version None)
Quarter: 2007Q1

REPORT INFORMATION
  Report Type: 
  Country: None (occurrence: None)
  Receive Date: 20070215
  Receipt Date: 20070208
  Transmission Date: 20070707
  Serious: Yes (Other)
  Sender: FDA-Public Use
  Company Number: AU-GLAXOSMITHKLINE-B0457000A

PATIENT
  Age: 68 Year
  Sex: Female

DRUGS (10)
  1. CARTIA XT [Suspect]
     Indication: STENT PLACEMENT
     Route: 048
  2. WARFARIN SODIUM [Concomitant]
  3. ASTRIX [Concomitant]
     Dates: end: 20070115
  4. INDAPAMIDE [Concomitant]
     Indication: BLOOD PRESSURE
  5. UNKNOWN MEDICATION [Concomitant]
     Indication: HEART RATE
     Dosage: 120MG TWICE PER DAY
  6. DIAMICRON [Concomitant]
     Dosage: 30MG TWICE PER DAY
  7. AVAPRO [Concomitant]
     Indication: BLOOD PRESSURE
  8. LIPEX [Concomitant]
  9. XALATAN [Concomitant]
  10. ASPIRIN [Concomitant]
     Indication: ANTICOAGULANT THERAPY

REACTIONS (3)
  - DEAFNESS [None]
  - TINNITUS [None]
  - VERTIGO [None]
